FAERS Safety Report 14289939 (Version 2)
Quarter: 2017Q4

REPORT INFORMATION
  Report Type: Spontaneous
  Country: US (occurrence: US)
  Receive Date: 20171215
  Receipt Date: 20171220
  Transmission Date: 20180321
  Serious: Yes (Death, Hospitalization)
  Sender: FDA-Public Use
  Company Number: US-UNITED THERAPEUTICS-UNT-2017-017471

PATIENT
  Age: 90 Year
  Sex: Female
  Weight: 51.7 kg

DRUGS (1)
  1. TYVASO [Suspect]
     Active Substance: TREPROSTINIL
     Indication: PULMONARY ARTERIAL HYPERTENSION
     Dosage: 18-90 MICROGRAMS, QID
     Dates: start: 20150804

REACTIONS (4)
  - Pneumonia [Fatal]
  - Off label use [Unknown]
  - Pulmonary arterial hypertension [Fatal]
  - Chest pain [Unknown]

NARRATIVE: CASE EVENT DATE: 20171205
